FAERS Safety Report 4621555-8 (Version None)
Quarter: 2005Q1

REPORT INFORMATION
  Report Type: 
  Country: None (occurrence: None)
  Receive Date: 20050329
  Receipt Date: 20050315
  Transmission Date: 20050727
  Serious: Yes (Life-Threatening, Other)
  Sender: FDA-Public Use
  Company Number: 2005044853

PATIENT
  Sex: Female
  Weight: 97.977 kg

DRUGS (2)
  1. LIPITOR [Suspect]
     Indication: BLOOD CHOLESTEROL INCREASED
     Dosage: 10 MG (10 MG, DAILY), ORAL
     Route: 048
     Dates: start: 20041101, end: 20050228
  2. LIPITOR [Suspect]
     Indication: BLOOD TRIGLYCERIDES INCREASED
     Dosage: 10 MG (10 MG, DAILY), ORAL
     Route: 048
     Dates: start: 20041101, end: 20050228

REACTIONS (2)
  - HEPATIC FAILURE [None]
  - HEPATITIS [None]
